FAERS Safety Report 23470166 (Version 1)
Quarter: 2024Q1

REPORT INFORMATION
  Report Type: Report from Study
  Country: RU (occurrence: RU)
  Receive Date: 20240202
  Receipt Date: 20240202
  Transmission Date: 20240410
  Serious: Yes (Other)
  Sender: FDA-Public Use
  Company Number: RU-ALLERGAN-2210747US

PATIENT

DRUGS (3)
  1. DEXAMETHASONE [Suspect]
     Active Substance: DEXAMETHASONE
     Indication: Retinal vein occlusion
     Dosage: TIME INTERVAL: AS NECESSARY
     Route: 031
  2. DEXAMETHASONE [Suspect]
     Active Substance: DEXAMETHASONE
     Indication: Diabetic retinal oedema
  3. DEXAMETHASONE [Suspect]
     Active Substance: DEXAMETHASONE
     Indication: Age-related macular degeneration

REACTIONS (5)
  - Retinal vein occlusion [Recovered/Resolved]
  - Age-related macular degeneration [Recovered/Resolved]
  - Diabetic retinal oedema [Recovered/Resolved]
  - Condition aggravated [Recovered/Resolved]
  - Drug ineffective [Unknown]
